FAERS Safety Report 4284261-8 (Version None)
Quarter: 2004Q1

REPORT INFORMATION
  Report Type: 
  Country: None (occurrence: None)
  Receive Date: 20040203
  Receipt Date: 20040128
  Transmission Date: 20041129
  Serious: Yes (Hospitalization)
  Sender: FDA-Public Use
  Company Number: WAES 0401USA02106

PATIENT
  Age: 67 Year
  Sex: Female

DRUGS (10)
  1. ASPIRIN [Concomitant]
  2. PLAVIX [Concomitant]
  3. FISH OIL (UNSPECIFIED) [Concomitant]
  4. MONOPRIL [Concomitant]
  5. MAXZIDE [Concomitant]
  6. IMDUR [Concomitant]
  7. TOPROL-XL [Concomitant]
  8. NITROSTAT [Concomitant]
  9. ACTONEL [Concomitant]
  10. ZOCOR [Suspect]
     Indication: HYPERCHOLESTEROLAEMIA
     Route: 048
     Dates: end: 20040114

REACTIONS (4)
  - BLOOD CREATINE PHOSPHOKINASE INCREASED [None]
  - BUNDLE BRANCH BLOCK LEFT [None]
  - CHEST PAIN [None]
  - RED BLOOD CELL SEDIMENTATION RATE INCREASED [None]
